FAERS Safety Report 25779537 (Version 1)
Quarter: 2025Q3

REPORT INFORMATION
  Report Type: Spontaneous
  Country: US (occurrence: US)
  Receive Date: 20250909
  Receipt Date: 20250909
  Transmission Date: 20251021
  Serious: No
  Sender: TORRENT PHARMA INC.
  Company Number: US-TORRENT-00014490

PATIENT
  Age: 74 Year
  Sex: Female
  Weight: 49 kg

DRUGS (1)
  1. ITRACONAZOLE [Suspect]
     Active Substance: ITRACONAZOLE
     Indication: Product used for unknown indication
     Route: 065

REACTIONS (10)
  - Nausea [Unknown]
  - Product substitution issue [Unknown]
  - Dizziness [Unknown]
  - Fatigue [Unknown]
  - Sitting disability [Unknown]
  - Gastrointestinal disorder [Unknown]
  - Constipation [Unknown]
  - Mucosal disorder [Unknown]
  - Dysstasia [Unknown]
  - Drug intolerance [Unknown]
